FAERS Safety Report 21953157 (Version 2)
Quarter: 2023Q1

REPORT INFORMATION
  Report Type: Spontaneous
  Country: GB (occurrence: GB)
  Receive Date: 20230204
  Receipt Date: 20230209
  Transmission Date: 20230418
  Serious: Yes (Death, Hospitalization, Other)
  Sender: FDA-Public Use
  Company Number: GB-002147023-NVSC2023GB021209

PATIENT

DRUGS (217)
  1. EMTRICITABINE\TENOFOVIR DISOPROXIL [Suspect]
     Active Substance: EMTRICITABINE\TENOFOVIR DISOPROXIL
     Indication: Foetal exposure during pregnancy
     Dosage: MATERNAL DOSE (1 DOSAGE FORM, QD (1 TABLET/CAPSULE, DAILY))
     Route: 064
  2. EMTRICITABINE\TENOFOVIR DISOPROXIL [Suspect]
     Active Substance: EMTRICITABINE\TENOFOVIR DISOPROXIL
     Dosage: MATERNAL USE: UNK
     Route: 064
  3. EMTRICITABINE\TENOFOVIR DISOPROXIL [Suspect]
     Active Substance: EMTRICITABINE\TENOFOVIR DISOPROXIL
     Dosage: MATERNAL DOSE: UNK, QD ON 05 FEB 2018
     Route: 064
  4. EMTRICITABINE\TENOFOVIR DISOPROXIL [Suspect]
     Active Substance: EMTRICITABINE\TENOFOVIR DISOPROXIL
     Dosage: MATERNAL DOSE: 1 DOSAGE FORM, QD (1 TABLET/CAPSULE, DAILY)
     Route: 064
  5. EMTRICITABINE\TENOFOVIR DISOPROXIL [Suspect]
     Active Substance: EMTRICITABINE\TENOFOVIR DISOPROXIL
     Dosage: MATERNAL DOSE: 1 DOSAGE FORM, QD (ALSO RECEIVED ON 05 FEB 2018)
     Route: 064
  6. EMTRICITABINE\TENOFOVIR DISOPROXIL [Suspect]
     Active Substance: EMTRICITABINE\TENOFOVIR DISOPROXIL
     Dosage: MATERNAL DOSE: 1 DOSAGE FORM, QD
     Route: 064
  7. EMTRICITABINE\TENOFOVIR DISOPROXIL [Suspect]
     Active Substance: EMTRICITABINE\TENOFOVIR DISOPROXIL
     Dosage: MATERNAL DOSE: 1 DOSAGE FORM, QD (1 TABLET/CAPSULE, DAILY)
     Route: 064
  8. EMTRICITABINE\TENOFOVIR DISOPROXIL [Suspect]
     Active Substance: EMTRICITABINE\TENOFOVIR DISOPROXIL
     Dosage: MATERNAL DOSE: 1 DOSAGE FORM, QD (1 TABLET/CAPSULE, DAILY)
     Route: 064
  9. EMTRICITABINE\TENOFOVIR DISOPROXIL [Suspect]
     Active Substance: EMTRICITABINE\TENOFOVIR DISOPROXIL
     Dosage: MATERNAL DOSE: 1 DOSAGE FORM, QD (ALSO RECEIVED ON 05 FEB 2018)
     Route: 064
  10. EMTRICITABINE\TENOFOVIR DISOPROXIL [Suspect]
     Active Substance: EMTRICITABINE\TENOFOVIR DISOPROXIL
     Dosage: MATERNAL DOSE: 1 DOSAGE FORM, QD (1 TABLET/CAPSULE, DAILY)
     Route: 064
  11. METFORMIN HYDROCHLORIDE [Suspect]
     Active Substance: METFORMIN HYDROCHLORIDE
     Indication: Foetal exposure during pregnancy
     Dosage: MATERNAL DOSE: UNK
     Route: 064
  12. METFORMIN HYDROCHLORIDE [Suspect]
     Active Substance: METFORMIN HYDROCHLORIDE
     Dosage: MATERNAL DOSE: UNK
     Route: 064
  13. METFORMIN HYDROCHLORIDE [Suspect]
     Active Substance: METFORMIN HYDROCHLORIDE
     Dosage: MATERNAL DOSE: UNK
     Route: 064
  14. METFORMIN [Suspect]
     Active Substance: METFORMIN HYDROCHLORIDE
     Indication: Foetal exposure during pregnancy
     Dosage: MATERNAL DOSE: UNK
     Route: 064
  15. METFORMIN [Suspect]
     Active Substance: METFORMIN HYDROCHLORIDE
     Dosage: MATERNAL DOSE: UNK
     Route: 064
  16. METFORMIN [Suspect]
     Active Substance: METFORMIN HYDROCHLORIDE
     Dosage: MATERNAL DOSE: UNK
     Route: 064
  17. METFORMIN [Suspect]
     Active Substance: METFORMIN HYDROCHLORIDE
     Dosage: MATERNAL DOSE: UNK
     Route: 064
  18. METFORMIN [Suspect]
     Active Substance: METFORMIN HYDROCHLORIDE
     Dosage: MATERNAL DOSE: UNK
     Route: 064
  19. METFORMIN [Suspect]
     Active Substance: METFORMIN HYDROCHLORIDE
     Dosage: MATERNAL DOSE: UNK
     Route: 064
  20. METFORMIN [Suspect]
     Active Substance: METFORMIN HYDROCHLORIDE
     Dosage: MATERNAL DOSE: UNK
     Route: 064
  21. METFORMIN [Suspect]
     Active Substance: METFORMIN HYDROCHLORIDE
     Dosage: MATERNAL DOSE: UNK
     Route: 064
  22. TENOFOVIR [Suspect]
     Active Substance: TENOFOVIR
     Indication: Foetal exposure during pregnancy
     Dosage: MATERNAL DOSE: 1 DOSAGE FORM, QD
     Route: 064
  23. TENOFOVIR [Suspect]
     Active Substance: TENOFOVIR
     Dosage: MATERNAL DOSE: 1 DOSAGE FORM, QD
     Route: 064
  24. TENOFOVIR [Suspect]
     Active Substance: TENOFOVIR
     Dosage: MATERNAL DOSE: 1 DOSAGE FORM, QD (1 TABLET/ CAPSULE DAILY)
     Route: 064
  25. TENOFOVIR [Suspect]
     Active Substance: TENOFOVIR
     Dosage: MATERNAL DOSE: 1 DOSAGE FORM, QD
     Route: 064
  26. TENOFOVIR [Suspect]
     Active Substance: TENOFOVIR
     Dosage: MATERNAL DOSE: 300 MG, QD
     Route: 064
  27. TENOFOVIR [Suspect]
     Active Substance: TENOFOVIR
     Dosage: MATERNAL DOSE: UNK
     Route: 064
  28. TENOFOVIR [Suspect]
     Active Substance: TENOFOVIR
     Dosage: MATERNAL DOSE: 1 DOSAGE FORM, QD
     Route: 064
  29. TENOFOVIR DISOPROXIL [Suspect]
     Active Substance: TENOFOVIR DISOPROXIL
     Indication: Foetal exposure during pregnancy
     Dosage: MATERNAL DOSE: UNK
     Route: 064
  30. TENOFOVIR DISOPROXIL [Suspect]
     Active Substance: TENOFOVIR DISOPROXIL
     Dosage: MATERNAL DOSE: 1 DOSAGE FORM QD, TABLET/CAPSULE, STARTED ON 06 OCT 2017 AND STOPPED ON 05 FEB 2018
     Route: 064
  31. TENOFOVIR DISOPROXIL [Suspect]
     Active Substance: TENOFOVIR DISOPROXIL
     Dosage: MATERNAL DOSE: 1 DOSAGE FORM QD, TABLET/CAPSULE, STARTED ON 06 OCT 2017 AND STOPPED ON 05 FEB 2018
     Route: 064
  32. TENOFOVIR DISOPROXIL [Suspect]
     Active Substance: TENOFOVIR DISOPROXIL
     Dosage: MATERNAL DOSE: 1 DOSAGE FORM QD, TABLET/CAPSULE, STARTED ON 05 FEB 2018
     Route: 064
  33. TENOFOVIR DISOPROXIL [Suspect]
     Active Substance: TENOFOVIR DISOPROXIL
     Dosage: MATERNAL DOSE: UNK
     Route: 064
  34. TENOFOVIR DISOPROXIL [Suspect]
     Active Substance: TENOFOVIR DISOPROXIL
     Dosage: MATERNAL DOSE: 1 DOSAGE FORM QD
     Route: 064
  35. TENOFOVIR DISOPROXIL [Suspect]
     Active Substance: TENOFOVIR DISOPROXIL
     Dosage: MATERNAL DOSE: 1 DOSAGE FORM QD, TABLET/CAPSULE, STARTED ON 10 JUN 2017 AND STOPPED ON 05 FEB 2018
     Route: 064
  36. TENOFOVIR DISOPROXIL [Suspect]
     Active Substance: TENOFOVIR DISOPROXIL
     Dosage: MATERNAL DOSE: 300 MG QD, STARTED ON 10 JUN 2017
     Route: 064
  37. EFAVIRENZ [Suspect]
     Active Substance: EFAVIRENZ
     Indication: Foetal exposure during pregnancy
     Dosage: MATERNAL USE: UNK
     Route: 064
  38. EFAVIRENZ [Suspect]
     Active Substance: EFAVIRENZ
     Dosage: MATERNAL USE: 1 DOSAGE FORM, QD
     Route: 064
  39. EFAVIRENZ [Suspect]
     Active Substance: EFAVIRENZ
     Dosage: MATERNAL USE: 1 DOSAGE FORM, QD
     Route: 064
  40. EFAVIRENZ [Suspect]
     Active Substance: EFAVIRENZ
     Dosage: MATERNAL USE: 1 DOSAGE FORM, QD, 1 TABLET/CAPSULE, DAILY
     Route: 064
  41. EFAVIRENZ [Suspect]
     Active Substance: EFAVIRENZ
     Dosage: MATERNAL USE: 1 DOSAGE FORM, QD
     Route: 064
  42. LOPINAVIR\RITONAVIR [Suspect]
     Active Substance: LOPINAVIR\RITONAVIR
     Indication: Foetal exposure during pregnancy
     Dosage: MATERNAL USE: UNK
     Route: 064
  43. LOPINAVIR\RITONAVIR [Suspect]
     Active Substance: LOPINAVIR\RITONAVIR
     Dosage: MATERNAL USE: UNK
     Route: 064
  44. LOPINAVIR\RITONAVIR [Suspect]
     Active Substance: LOPINAVIR\RITONAVIR
     Dosage: MATERNAL USE: UNK
     Route: 064
  45. LOPINAVIR\RITONAVIR [Suspect]
     Active Substance: LOPINAVIR\RITONAVIR
     Dosage: MATERNAL USE: UNK
     Route: 064
  46. LOPINAVIR\RITONAVIR [Suspect]
     Active Substance: LOPINAVIR\RITONAVIR
     Dosage: MATERNAL USE: UNK
     Route: 064
  47. TRUVADA [Suspect]
     Active Substance: EMTRICITABINE\TENOFOVIR DISOPROXIL FUMARATE
     Indication: Foetal exposure during pregnancy
     Dosage: MATERNAL DOSE: 1 DOSAGE FORM, QD
     Route: 064
  48. TRUVADA [Suspect]
     Active Substance: EMTRICITABINE\TENOFOVIR DISOPROXIL FUMARATE
     Dosage: MATERNAL DOSE: 1 DOSAGE FORM, QD (1 DOSAGE FORM, QD; 1 TABLET/CAPSULE, QD)
     Route: 064
  49. TRUVADA [Suspect]
     Active Substance: EMTRICITABINE\TENOFOVIR DISOPROXIL FUMARATE
     Dosage: MATERNAL DOSE: 1 DOSAGE FORM, QD
     Route: 064
  50. TRUVADA [Suspect]
     Active Substance: EMTRICITABINE\TENOFOVIR DISOPROXIL FUMARATE
     Dosage: MATERNAL DOSE: 1 DOSAGE FORM, QD
     Route: 064
  51. TRUVADA [Suspect]
     Active Substance: EMTRICITABINE\TENOFOVIR DISOPROXIL FUMARATE
     Dosage: MATERNAL DOSE: 1 DOSAGE FORM, QD (1 TABLET/CAPSULE, QD)
     Route: 064
  52. TRUVADA [Suspect]
     Active Substance: EMTRICITABINE\TENOFOVIR DISOPROXIL FUMARATE
     Dosage: MATERNAL DOSE:1 DOSAGE FORM, QD (1 TABLET/CAPSULE, QD)
     Route: 064
  53. TRUVADA [Suspect]
     Active Substance: EMTRICITABINE\TENOFOVIR DISOPROXIL FUMARATE
     Dosage: MATERNAL DOSE: UNK
     Route: 064
  54. TRUVADA [Suspect]
     Active Substance: EMTRICITABINE\TENOFOVIR DISOPROXIL FUMARATE
     Dosage: MATERNAL DOSE: UNK
     Route: 064
  55. TRUVADA [Suspect]
     Active Substance: EMTRICITABINE\TENOFOVIR DISOPROXIL FUMARATE
     Dosage: MATERNAL DOSE: 1 DOSAGE FORM, QD (1 TABLET, QD)
     Route: 064
  56. TRUVADA [Suspect]
     Active Substance: EMTRICITABINE\TENOFOVIR DISOPROXIL FUMARATE
     Dosage: MATERNAL DOSE: 1 DOSAGE FORM, QD
     Route: 064
  57. TRUVADA [Suspect]
     Active Substance: EMTRICITABINE\TENOFOVIR DISOPROXIL FUMARATE
     Dosage: MATERNAL DOSE:
     Route: 064
  58. TRUVADA [Suspect]
     Active Substance: EMTRICITABINE\TENOFOVIR DISOPROXIL FUMARATE
     Dosage: MATERNAL DOSE: 1 DOSAGE FORM, QD (1 DOSAGE FORM, QD; 1 TABLET/CAPSULE, QD)
     Route: 064
  59. TRUVADA [Suspect]
     Active Substance: EMTRICITABINE\TENOFOVIR DISOPROXIL FUMARATE
     Dosage: MATERNAL DOSE: 1 DOSAGE FORM, QD (1 TABLET/CAPSULE, QD)
     Route: 064
  60. TRUVADA [Suspect]
     Active Substance: EMTRICITABINE\TENOFOVIR DISOPROXIL FUMARATE
     Dosage: MATERNAL DOSE:  1 DOSAGE FORM, QD (1 TABLET/CAPSULE, QD)
     Route: 064
  61. TRUVADA [Suspect]
     Active Substance: EMTRICITABINE\TENOFOVIR DISOPROXIL FUMARATE
     Dosage: MATERNAL DOSE: UNK
     Route: 064
  62. LAMIVUDINE [Suspect]
     Active Substance: LAMIVUDINE
     Indication: Foetal exposure during pregnancy
     Dosage: MATERNAL DOSE: 300 MG, QD
     Route: 064
  63. LAMIVUDINE [Suspect]
     Active Substance: LAMIVUDINE
     Dosage: MATERNAL DOSE: UNK
     Route: 064
  64. LAMIVUDINE [Suspect]
     Active Substance: LAMIVUDINE
     Dosage: MATERNAL DOSE: 300 MG, QD
     Route: 064
  65. LAMIVUDINE [Suspect]
     Active Substance: LAMIVUDINE
     Dosage: MATERNAL DOSE: 300 MG, QD
     Route: 064
  66. LAMIVUDINE [Suspect]
     Active Substance: LAMIVUDINE
     Dosage: MATERNAL DOSE: 3000 MG, QD
     Route: 064
  67. LAMIVUDINE [Suspect]
     Active Substance: LAMIVUDINE
     Dosage: MATERNAL DOSE: 300 MG
     Route: 065
  68. LAMIVUDINE [Suspect]
     Active Substance: LAMIVUDINE
     Dosage: MATERNAL DOSE: 300 MG
     Route: 064
  69. FOLIC ACID [Suspect]
     Active Substance: FOLIC ACID
     Indication: Foetal exposure during pregnancy
     Dosage: MATERNAL DOSE: 1 DOSAGE FORM, QD
     Route: 064
  70. FOLIC ACID [Suspect]
     Active Substance: FOLIC ACID
     Dosage: MATERNAL DOSE: 1 DOSAGE FORM, QD (1 TABLET/CAPSULE, DAILY)
     Route: 064
  71. FOLIC ACID [Suspect]
     Active Substance: FOLIC ACID
     Dosage: MATERNAL DOSE: UNK
     Route: 064
  72. NEVIRAPINE [Suspect]
     Active Substance: NEVIRAPINE
     Indication: Foetal exposure during pregnancy
     Dosage: MATERNAL DOSE: 400 MG, QD
     Route: 064
  73. NEVIRAPINE [Suspect]
     Active Substance: NEVIRAPINE
     Dosage: MATERNAL DOSE: : UNK
     Route: 064
  74. NEVIRAPINE [Suspect]
     Active Substance: NEVIRAPINE
     Dosage: MATERNAL DOSE: 400 MG, QD
     Route: 064
  75. NEVIRAPINE [Suspect]
     Active Substance: NEVIRAPINE
     Dosage: MATERNAL DOSE: 400 MG, QD
     Route: 064
  76. LABETALOL [Suspect]
     Active Substance: LABETALOL\LABETALOL HYDROCHLORIDE
     Indication: Foetal exposure during pregnancy
     Dosage: MATERNAL DOSE: UNK
     Route: 064
  77. LABETALOL [Suspect]
     Active Substance: LABETALOL\LABETALOL HYDROCHLORIDE
     Dosage: MATERNAL DOSE: UNK
     Route: 064
  78. LABETALOL [Suspect]
     Active Substance: LABETALOL\LABETALOL HYDROCHLORIDE
     Dosage: MATERNAL DOSE: UNK
     Route: 064
  79. LABETALOL [Suspect]
     Active Substance: LABETALOL\LABETALOL HYDROCHLORIDE
     Dosage: MATERNAL DOSE: UNK
     Route: 064
  80. LABETALOL [Suspect]
     Active Substance: LABETALOL\LABETALOL HYDROCHLORIDE
     Dosage: MATERNAL DOSE: UNK
     Route: 064
  81. LABETALOL [Suspect]
     Active Substance: LABETALOL\LABETALOL HYDROCHLORIDE
     Dosage: MATERNAL DOSE: UNK
     Route: 064
  82. LABETALOL [Suspect]
     Active Substance: LABETALOL\LABETALOL HYDROCHLORIDE
     Dosage: MATERNAL DOSE: UNK
     Route: 064
  83. LABETALOL [Suspect]
     Active Substance: LABETALOL\LABETALOL HYDROCHLORIDE
     Dosage: MATERNAL DOSE: UNK
     Route: 064
  84. LABETALOL [Suspect]
     Active Substance: LABETALOL\LABETALOL HYDROCHLORIDE
     Dosage: MATERNAL DOSE: UNK
     Route: 064
  85. LABETALOL [Suspect]
     Active Substance: LABETALOL\LABETALOL HYDROCHLORIDE
     Dosage: MATERNAL DOSE: UNK
     Route: 064
  86. KALETRA [Suspect]
     Active Substance: LOPINAVIR\RITONAVIR
     Indication: Foetal exposure during pregnancy
     Dosage: MATERNAL DOSE: 1 DOSAGE FORM, QD
     Route: 064
  87. KALETRA [Suspect]
     Active Substance: LOPINAVIR\RITONAVIR
     Dosage: MATERNAL DOSE: 1 DOSAGE FORM
     Route: 064
  88. KALETRA [Suspect]
     Active Substance: LOPINAVIR\RITONAVIR
     Dosage: MATERNAL DOSE: UNK
     Route: 064
  89. KALETRA [Suspect]
     Active Substance: LOPINAVIR\RITONAVIR
     Dosage: MATERNAL DOSE: UNK
     Route: 064
  90. KALETRA [Suspect]
     Active Substance: LOPINAVIR\RITONAVIR
     Dosage: MATERNAL DOSE: 1 DOSAGE FORM, QD
     Route: 064
  91. KALETRA [Suspect]
     Active Substance: LOPINAVIR\RITONAVIR
     Dosage: MATERNAL DOSE: 1 DOSAGE FORM, QD
     Route: 064
  92. KALETRA [Suspect]
     Active Substance: LOPINAVIR\RITONAVIR
     Dosage: MATERNAL DOSE: 1 DOSAGE FORM
     Route: 064
  93. VITAMIN B12 [Suspect]
     Active Substance: CYANOCOBALAMIN
     Indication: Product used for unknown indication
     Dosage: MATERNAL DOSE: UNK
     Route: 064
  94. VITAMIN B12 [Suspect]
     Active Substance: CYANOCOBALAMIN
     Dosage: MATERNAL DOSE: UNK
     Route: 064
  95. VITAMIN B12 [Suspect]
     Active Substance: CYANOCOBALAMIN
     Dosage: MATERNAL DOSE: UNK
     Route: 064
  96. TENOFOVIR DISOPROXIL FUMARATE [Suspect]
     Active Substance: TENOFOVIR DISOPROXIL FUMARATE
     Indication: Foetal exposure during pregnancy
     Dosage: MATERNAL DOSE: 1 DOSAGE FORM, QD
     Route: 064
  97. LOPINAVIR\RITONAVIR [Suspect]
     Active Substance: LOPINAVIR\RITONAVIR
     Indication: Foetal exposure during pregnancy
     Dosage: MATERNAL DOSE: UNK, STARTED ON 10 JUN 2010, PATIENT WAS NOT TAKING MEDICINE AT CONCEPTION
     Route: 064
  98. LOPINAVIR\RITONAVIR [Suspect]
     Active Substance: LOPINAVIR\RITONAVIR
     Dosage: MATERNAL DOSE: UNK
     Route: 064
  99. LOPINAVIR\RITONAVIR [Suspect]
     Active Substance: LOPINAVIR\RITONAVIR
     Dosage: MATERNAL DOSE: UNK, STARTED ON 10 JUN 2022
     Route: 064
  100. LOPINAVIR\RITONAVIR [Suspect]
     Active Substance: LOPINAVIR\RITONAVIR
     Dosage: MATERNAL DOSE: UNK
     Route: 064
  101. LOPINAVIR\RITONAVIR [Suspect]
     Active Substance: LOPINAVIR\RITONAVIR
     Dosage: MATERNAL DOSE: UNK QD, STARTED AND STOPPED ON 10 JUN 2010
     Route: 064
  102. LOPINAVIR\RITONAVIR [Suspect]
     Active Substance: LOPINAVIR\RITONAVIR
     Dosage: MATERNAL DOSE: UNK QD, STARTED AND STOPPED ON 10 JUN 2010
     Route: 064
  103. LOPINAVIR\RITONAVIR [Suspect]
     Active Substance: LOPINAVIR\RITONAVIR
     Dosage: MATERNAL DOSE: UNK
     Route: 064
  104. LOPINAVIR\RITONAVIR [Suspect]
     Active Substance: LOPINAVIR\RITONAVIR
     Dosage: MATERNAL DOSE: UNK, STARTED ON 10 JUN 2010, PATIENT WAS NOT TAKING MEDICINE AT CONCEPTION
     Route: 064
  105. LOPINAVIR\RITONAVIR [Suspect]
     Active Substance: LOPINAVIR\RITONAVIR
     Dosage: MATERNAL DOSE: UNK, STARTED 10 JUN 2010
     Route: 064
  106. LOPINAVIR\RITONAVIR [Suspect]
     Active Substance: LOPINAVIR\RITONAVIR
     Dosage: MATERNAL DOSE: UNK, STARTED 10 JUN 2010
     Route: 064
  107. LOPINAVIR\RITONAVIR [Suspect]
     Active Substance: LOPINAVIR\RITONAVIR
     Dosage: MATERNAL DOSE: 1 DOSAGE FORM QD, STARTED AND STOPPED ON 10 JUN 2010
     Route: 064
  108. LOPINAVIR\RITONAVIR [Suspect]
     Active Substance: LOPINAVIR\RITONAVIR
     Dosage: MATERNAL DOSE: 1 DOSAGE FORM QD, STARTED ON 10 JUN 2010 AND STOPPED ON 10 JUN 2022
     Route: 064
  109. LOPINAVIR\RITONAVIR [Suspect]
     Active Substance: LOPINAVIR\RITONAVIR
     Dosage: MATERNAL DOSE: 1 DOSAGE FORM QD, STARTED ON 10 JUN 2020
     Route: 064
  110. LOPINAVIR\RITONAVIR [Suspect]
     Active Substance: LOPINAVIR\RITONAVIR
     Dosage: MATERNAL DOSE: UNK STARTED ON 10 JUN 2010
     Route: 064
  111. LOPINAVIR\RITONAVIR [Suspect]
     Active Substance: LOPINAVIR\RITONAVIR
     Dosage: MATERNAL DOSE: UNK
     Route: 064
  112. LOPINAVIR\RITONAVIR [Suspect]
     Active Substance: LOPINAVIR\RITONAVIR
     Dosage: MATERNAL DOSE: UNK STARTED ON 10 JUN 2020
     Route: 064
  113. LOPINAVIR\RITONAVIR [Suspect]
     Active Substance: LOPINAVIR\RITONAVIR
     Dosage: MATERNAL DOSE: UNK, STARTED ON 10 JUN 2010, PATIENT WAS NOT TAKING MEDICINE AT CONCEPTION
     Route: 064
  114. CYANOCOBALAMIN [Suspect]
     Active Substance: CYANOCOBALAMIN
     Indication: Foetal exposure during pregnancy
     Dosage: MATERNAL DOSE: UNK
     Route: 064
  115. CYANOCOBALAMIN [Suspect]
     Active Substance: CYANOCOBALAMIN
     Dosage: MATERNAL DOSE: UNK
     Route: 064
  116. CYANOCOBALAMIN [Suspect]
     Active Substance: CYANOCOBALAMIN
     Dosage: MATERNAL DOSE: QW
     Route: 064
  117. CYANOCOBALAMIN [Suspect]
     Active Substance: CYANOCOBALAMIN
     Dosage: MATERNAL DOSE: UNK
     Route: 064
  118. CYANOCOBALAMIN [Suspect]
     Active Substance: CYANOCOBALAMIN
     Dosage: MATERNAL DOSE: QW
     Route: 064
  119. CYANOCOBALAMIN [Suspect]
     Active Substance: CYANOCOBALAMIN
     Dosage: MATERNAL DOSE: UNK
     Route: 064
  120. CYANOCOBALAMIN [Suspect]
     Active Substance: CYANOCOBALAMIN
     Dosage: MATERNAL DOSE: QW
     Route: 064
  121. LOPINAVIR [Suspect]
     Active Substance: LOPINAVIR
     Indication: Foetal exposure during pregnancy
     Dosage: MATERNAL DOSE: UNK, STARTED 10 JUN 2010)
     Route: 064
  122. LOPINAVIR [Suspect]
     Active Substance: LOPINAVIR
     Dosage: MATERNAL DOSE: UNK, STARTED 10 JUN 2010)
     Route: 064
  123. LOPINAVIR [Suspect]
     Active Substance: LOPINAVIR
     Dosage: MATERNAL DOSE: UNK, STARTED 10 JUN 2010)
     Route: 064
  124. LOPINAVIR [Suspect]
     Active Substance: LOPINAVIR
     Dosage: MATERNAL DOSE: UNK
     Route: 064
  125. LOPINAVIR [Suspect]
     Active Substance: LOPINAVIR
     Dosage: MATERNAL DOSE: UNK, STARTED 10 JUN 2010)
     Route: 064
  126. LOPINAVIR [Suspect]
     Active Substance: LOPINAVIR
     Dosage: MATERNAL DOSE: UNK, STARTED 10 JUN 2010)
     Route: 064
  127. INSULIN ASPART [Suspect]
     Active Substance: INSULIN ASPART
     Indication: Foetal exposure during pregnancy
     Dosage: MATERNAL DOSE: QW
     Route: 064
  128. INSULIN ASPART [Suspect]
     Active Substance: INSULIN ASPART
     Dosage: MATERNAL DOSE: UNK
     Route: 064
  129. INSULIN ASPART [Suspect]
     Active Substance: INSULIN ASPART
     Dosage: MATERNAL DOSE: QW
     Route: 064
  130. INSULIN ASPART [Suspect]
     Active Substance: INSULIN ASPART
     Dosage: MATERNAL DOSE: UNK
     Route: 064
  131. INSULIN ASPART [Suspect]
     Active Substance: INSULIN ASPART
     Dosage: MATERNAL DOSE: QW
     Route: 064
  132. INSULIN ASPART [Suspect]
     Active Substance: INSULIN ASPART
     Dosage: MATERNAL DOSE: UNK
     Route: 064
  133. INSULIN ASPART [Suspect]
     Active Substance: INSULIN ASPART
     Dosage: MATERNAL DOSE: UNK
     Route: 064
  134. INSULIN ASPART [Suspect]
     Active Substance: INSULIN ASPART
     Dosage: MATERNAL DOSE: UNK
     Route: 064
  135. INSULIN ASPART [Suspect]
     Active Substance: INSULIN ASPART
     Dosage: MATERNAL DOSE: UNK
     Route: 064
  136. INSULIN ASPART [Suspect]
     Active Substance: INSULIN ASPART
     Dosage: MATERNAL DOSE: UNK
     Route: 064
  137. INSULIN ASPART [Suspect]
     Active Substance: INSULIN ASPART
     Dosage: MATERNAL DOSE: UNK
     Route: 064
  138. INSULIN ASPART [Suspect]
     Active Substance: INSULIN ASPART
     Dosage: MATERNAL DOSE: UNK
     Route: 064
  139. INSULIN ASPART [Suspect]
     Active Substance: INSULIN ASPART
     Dosage: MATERNAL DOSE: QW
     Route: 064
  140. INSULIN ASPART [Suspect]
     Active Substance: INSULIN ASPART
     Dosage: MATERNAL DOSE: QW
     Route: 064
  141. INSULIN ASPART [Suspect]
     Active Substance: INSULIN ASPART
     Dosage: MATERNAL DOSE: QW
     Route: 064
  142. FOLATE SODIUM [Suspect]
     Active Substance: FOLATE SODIUM
     Indication: Foetal exposure during pregnancy
     Dosage: MATERNAL USE: UNK
     Route: 064
  143. FOLATE SODIUM [Suspect]
     Active Substance: FOLATE SODIUM
     Dosage: MATERNAL USE: UNK
     Route: 064
  144. FOLATE SODIUM [Suspect]
     Active Substance: FOLATE SODIUM
     Dosage: MATERNAL DOSE: 1 DOSAGE FORM QD, DATED 05 FEB 2018)
     Route: 064
  145. FOLATE SODIUM [Suspect]
     Active Substance: FOLATE SODIUM
     Dosage: MATERNAL USE: UNK
     Route: 064
  146. FOLATE SODIUM [Suspect]
     Active Substance: FOLATE SODIUM
     Dosage: MATERNAL DOSE: 1 DOSAGE FORM QD, DATED 05 FEB 2018)
     Route: 064
  147. RITONAVIR [Suspect]
     Active Substance: RITONAVIR
     Indication: Foetal exposure during pregnancy
     Dosage: MATERNAL USE: UNK
     Route: 064
  148. RITONAVIR [Suspect]
     Active Substance: RITONAVIR
     Dosage: MATERNAL USE: UNK
     Route: 064
  149. RITONAVIR [Suspect]
     Active Substance: RITONAVIR
     Dosage: MATERNAL USE: UNK, STARTED ON 10 JUN 2010
     Route: 064
  150. RITONAVIR [Suspect]
     Active Substance: RITONAVIR
     Dosage: MATERNAL USE: UNK
     Route: 064
  151. RITONAVIR [Suspect]
     Active Substance: RITONAVIR
     Dosage: MATERNAL USE: UNK
     Route: 064
  152. ZIDOVUDINE [Suspect]
     Active Substance: ZIDOVUDINE
     Indication: Foetal exposure during pregnancy
     Dosage: MATERNAL USE: 800 MG QD, STARTED AND STOPPED ON 10 JUN 2010
     Route: 064
  153. ZIDOVUDINE [Suspect]
     Active Substance: ZIDOVUDINE
     Dosage: MATERNAL USE: 800 MG QD, STARTED ON 10 JUN 2010
     Route: 064
  154. ZIDOVUDINE [Suspect]
     Active Substance: ZIDOVUDINE
     Dosage: MATERNAL DOSE: 600 MG QD, STARTED ON 10 JAN 2009 AND STOPPED ON 10 JUN 2010
     Route: 064
  155. ZIDOVUDINE [Suspect]
     Active Substance: ZIDOVUDINE
     Dosage: MATERNAL DOSE: 800 MG QD, STARTED ON 10 JUN 2009 AND STOPPED ON 10 JUN 2010
     Route: 064
  156. ZIDOVUDINE [Suspect]
     Active Substance: ZIDOVUDINE
     Dosage: MATERNAL DOSE: 600 MG QD, STARTED ON 10 JAN 2009 AND STOPPED ON 10 JUN 2010
     Route: 064
  157. ZIDOVUDINE [Suspect]
     Active Substance: ZIDOVUDINE
     Dosage: MATERNAL DOSE: UNK
     Route: 064
  158. ZIDOVUDINE [Suspect]
     Active Substance: ZIDOVUDINE
     Dosage: MATERNAL DOSE: UNK
     Route: 064
  159. ZIDOVUDINE [Suspect]
     Active Substance: ZIDOVUDINE
     Dosage: MATERNAL DOSE: 600 MG QD, STARTED ON 10 JAN 2009
     Route: 064
  160. ZIDOVUDINE [Suspect]
     Active Substance: ZIDOVUDINE
     Dosage: MATERNAL DOSE: 600 MG QD, STARTED ON 10 JAN 2009 AND STOPPED ON 10 JUN 2010
     Route: 064
  161. ZIDOVUDINE [Suspect]
     Active Substance: ZIDOVUDINE
     Dosage: MATERNAL DOSE: 600 MG QD, STARTED ON 10 JAN 2009 AND STOPPED ON 10 JUN 2010
     Route: 064
  162. ZIDOVUDINE [Suspect]
     Active Substance: ZIDOVUDINE
     Dosage: MATERNAL DOSE: UNK
     Route: 064
  163. ZIDOVUDINE [Suspect]
     Active Substance: ZIDOVUDINE
     Dosage: MATERNAL DOSE: UNK, STARTED ON 10 JUN 2010
     Route: 064
  164. ZIDOVUDINE [Suspect]
     Active Substance: ZIDOVUDINE
     Dosage: MATERNAL USE: 800 MG QD, STARTED ON 10 JUN 2009 AND STOPPED ON 10 JUN 2010
     Route: 064
  165. ZIDOVUDINE [Suspect]
     Active Substance: ZIDOVUDINE
     Dosage: MATERNAL USE: 800 MG QD, STARTED ON 10 JUN 2010
     Route: 064
  166. ZIDOVUDINE [Suspect]
     Active Substance: ZIDOVUDINE
     Dosage: MATERNAL DOSE: UNK
     Route: 064
  167. ZIDOVUDINE [Suspect]
     Active Substance: ZIDOVUDINE
     Dosage: MATERNAL USE: 800 MG QD, STARTED ON 10 JUN 2010
     Route: 064
  168. INSULIN ASPART [Suspect]
     Active Substance: INSULIN ASPART
     Indication: Foetal exposure during pregnancy
     Dosage: MATERNAL DOSE: UNK
     Route: 064
  169. INSULIN ASPART [Suspect]
     Active Substance: INSULIN ASPART
     Dosage: MATERNAL DOSE: UNK
     Route: 064
  170. INSULIN ASPART [Suspect]
     Active Substance: INSULIN ASPART
     Dosage: MATERNAL DOSE: UNK
     Route: 064
  171. INSULIN ASPART [Suspect]
     Active Substance: INSULIN ASPART
     Dosage: MATERNAL DOSE: UNK
     Route: 064
  172. INSULIN ASPART [Suspect]
     Active Substance: INSULIN ASPART
     Dosage: MATERNAL DOSE: UNK
     Route: 064
  173. INSULIN ASPART [Suspect]
     Active Substance: INSULIN ASPART
     Dosage: MATERNAL DOSE: UNK
     Route: 064
  174. INSULIN ASPART [Suspect]
     Active Substance: INSULIN ASPART
     Dosage: MATERNAL DOSE: UNK
     Route: 064
  175. INSULIN ASPART [Suspect]
     Active Substance: INSULIN ASPART
     Dosage: MATERNAL DOSE: UNK
     Route: 064
  176. INSULIN ASPART [Suspect]
     Active Substance: INSULIN ASPART
     Dosage: MATERNAL DOSE: UNK
     Route: 064
  177. INSULIN ASPART [Suspect]
     Active Substance: INSULIN ASPART
     Dosage: MATERNAL DOSE: UNK
     Route: 064
  178. ISENTRESS [Suspect]
     Active Substance: RALTEGRAVIR POTASSIUM
     Indication: Foetal exposure during pregnancy
     Dosage: MATERNAL DOSE: 3200 MG QD, STARTED ON 10 JUN 2010 (800 MG QID, 800 MG Q6H)
     Route: 064
  179. ISENTRESS [Suspect]
     Active Substance: RALTEGRAVIR POTASSIUM
     Dosage: MATERNAL DOSE: 3200 MG QD (800 MG QID)
     Route: 064
  180. ISENTRESS [Suspect]
     Active Substance: RALTEGRAVIR POTASSIUM
     Dosage: MATERNAL DOSE: 3200 MG QD (800 MG QID)
     Route: 064
  181. ISENTRESS [Suspect]
     Active Substance: RALTEGRAVIR POTASSIUM
     Dosage: MATERNAL DOSE: 3200 MG QD, STARTED ON 10 JUN 2010 (800 MG QID, 800 MG Q6H)
     Route: 064
  182. ISENTRESS [Suspect]
     Active Substance: RALTEGRAVIR POTASSIUM
     Dosage: MATERNAL DOSE: UNK
     Route: 064
  183. ISENTRESS [Suspect]
     Active Substance: RALTEGRAVIR POTASSIUM
     Dosage: MATERNAL DOSE: 3200 MG QD, STARTED ON 10 JUN 2010 (800 MG QID, 800 MG Q6H)
     Route: 064
  184. ISENTRESS [Suspect]
     Active Substance: RALTEGRAVIR POTASSIUM
     Dosage: MATERNAL DOSE: 3200 MG QD, STARTED ON 10 JUN 2010(800 MG QID)
     Route: 064
  185. ISENTRESS [Suspect]
     Active Substance: RALTEGRAVIR POTASSIUM
     Dosage: MATERNAL DOSE: UNK, STARTED ON 10 JUN 2010
     Route: 064
  186. ISENTRESS [Suspect]
     Active Substance: RALTEGRAVIR POTASSIUM
     Dosage: MATERNAL DOSE: 3200 MG QD, STARTED ON 10 JUN 2010 (800 MG QID, 800 MG Q6H)
     Route: 064
  187. ISENTRESS [Suspect]
     Active Substance: RALTEGRAVIR POTASSIUM
     Dosage: MATERNAL DOSE: 3200 MG QD, STARTED ON 10 JUN 2010 (800 MG QID, 800 MG Q6H)
     Route: 064
  188. EFAVIRENZ [Suspect]
     Active Substance: EFAVIRENZ
     Indication: Foetal exposure during pregnancy
     Dosage: MATERNAL DOSE: 1 DOSAGE FORM QD, STARTED ON 06 OCT 2017 AND STOPPED ON 05 FEB 2018)
     Route: 064
  189. EFAVIRENZ [Suspect]
     Active Substance: EFAVIRENZ
     Dosage: MATERNAL DOSE: 1 DOSAGE FORM QD, TABLET/CAPSULE) STARTED ON 06 OCT 2017
     Route: 064
  190. EFAVIRENZ [Suspect]
     Active Substance: EFAVIRENZ
     Dosage: MATERNAL DOSE: 1 DOSAGE FORM QD, STARTED ON 06 OCT 2017
     Route: 064
  191. EFAVIRENZ [Suspect]
     Active Substance: EFAVIRENZ
     Dosage: MATERNAL DOSE: 1 DOSAGE FORM QD, TABLET/CAPSULE) STARTED ON 06 OCT 2017
     Route: 064
  192. EFAVIRENZ [Suspect]
     Active Substance: EFAVIRENZ
     Dosage: MATERNAL DOSE: 1 DOSAGE FORM QD, STARTED ON 05 FEB 2018
     Route: 064
  193. EFAVIRENZ [Suspect]
     Active Substance: EFAVIRENZ
     Dosage: MATERNAL DOSE: QD, STARTED ON 06 OCT 2017
     Route: 064
  194. FOLIC ACID [Suspect]
     Active Substance: FOLIC ACID
     Indication: Foetal exposure during pregnancy
     Dosage: UNK (MATERNAL DOSE: UNK)
     Route: 064
  195. FOLIC ACID [Suspect]
     Active Substance: FOLIC ACID
     Dosage: UNK (MATERNAL DOSE: 1 TABLET/CAPSULE))
     Route: 064
  196. FOLIC ACID [Suspect]
     Active Substance: FOLIC ACID
     Dosage: UNK (MATERNAL DOSE: 1 DOSAGE FORM QD, TABLET/CAPSULE)
     Route: 064
  197. FOLIC ACID [Suspect]
     Active Substance: FOLIC ACID
     Dosage: UNK (MATERNAL DOSE: UNK)
     Route: 064
  198. FOLIC ACID [Suspect]
     Active Substance: FOLIC ACID
     Dosage: UNK (MATERNAL DOSE: 1 DOSAGE FORM QD, TABLET/CAPSULE)
     Route: 064
  199. FOLIC ACID [Suspect]
     Active Substance: FOLIC ACID
     Dosage: UNK (MATERNAL DOSE: 1 MG QD)
     Route: 064
  200. FOLIC ACID [Suspect]
     Active Substance: FOLIC ACID
     Dosage: UNK (MATERNAL DOSE: 1 TABLET/CAPSULE))
     Route: 064
  201. FOLIC ACID [Suspect]
     Active Substance: FOLIC ACID
     Dosage: UNK (MATERNAL DOSE: UNK)
     Route: 064
  202. FOLIC ACID [Suspect]
     Active Substance: FOLIC ACID
     Dosage: UNK (MATERNAL DOSE: UNK)
     Route: 064
  203. FOLIC ACID [Suspect]
     Active Substance: FOLIC ACID
     Dosage: UNK (MATERNAL DOSE: UNK)
     Route: 064
  204. EMTRICITABINE [Suspect]
     Active Substance: EMTRICITABINE
     Indication: Foetal exposure during pregnancy
     Dosage: (MATERNAL DOSE: 1 DOSAGE FORM QD, STARTED ON 10 JUN 2017, STOPPED ON 05 FEB 2018)
     Route: 064
  205. EMTRICITABINE [Suspect]
     Active Substance: EMTRICITABINE
     Dosage: (MATERNAL DOSE: 1 DOSAGE FORM QD, STARTED ON 05 FEB 2018)
     Route: 064
  206. EMTRICITABINE [Suspect]
     Active Substance: EMTRICITABINE
     Dosage: MATERNAL DOSE: UNK
     Route: 064
  207. EMTRICITABINE [Suspect]
     Active Substance: EMTRICITABINE
     Dosage: MATERNAL DOSE: 1 DOSAGE FORM QD, TABLET/CAPSULE
     Route: 064
  208. EMTRICITABINE [Suspect]
     Active Substance: EMTRICITABINE
     Dosage: MATERNAL DOSE: 1 DOSAGE FORM QD
     Route: 064
  209. EMTRICITABINE [Suspect]
     Active Substance: EMTRICITABINE
     Dosage: (MATERNAL DOSE: 1 DOSAGE FORM QD, TABLET/CAPSULE, STARTED ON 06 OCT 2017, STOPPED ON 05 FEB 2018)
     Route: 064
  210. EMTRICITABINE [Suspect]
     Active Substance: EMTRICITABINE
     Dosage: MATERNAL DOSE: 1 DOSAGE FORM QD
     Route: 064
  211. EMTRICITABINE [Suspect]
     Active Substance: EMTRICITABINE
     Dosage: MATERNAL DOSE: 1 DOSAGE FORM QD
     Route: 064
  212. EMTRICITABINE [Suspect]
     Active Substance: EMTRICITABINE
     Dosage: MATERNAL DOSE: UNK
     Route: 064
  213. EMTRICITABINE [Suspect]
     Active Substance: EMTRICITABINE
     Dosage: (MATERNAL DOSE: 1 DOSAGE FORM QD, TABLET/CAPSULE, STARTED ON 05 FEB 2018)
     Route: 064
  214. EMTRICITABINE [Suspect]
     Active Substance: EMTRICITABINE
     Dosage: (MATERNAL DOSE: 1 DOSAGE FORM QD, STARTED ON 10 JUN 2017, STOPPED ON 05 FEB 2018)
     Route: 064
  215. EMTRICITABINE [Suspect]
     Active Substance: EMTRICITABINE
     Dosage: MATERNAL DOSE: UNK
     Route: 064
  216. EMTRICITABINE [Suspect]
     Active Substance: EMTRICITABINE
     Dosage: (MATERNAL DOSE: 1 DOSAGE FORM QD, STARTED ON 05 FEB 2018)
     Route: 064
  217. EMTRICITABINE [Suspect]
     Active Substance: EMTRICITABINE
     Dosage: MATERNAL DOSE: 1 DOSAGE FORM QD, TABLET/CAPSULE, STARTED ON 06 OCT 2107)
     Route: 064

REACTIONS (2)
  - Trisomy 18 [Fatal]
  - Cleft lip and palate [Fatal]

NARRATIVE: CASE EVENT DATE: 20180112
